FAERS Safety Report 20801415 (Version 1)
Quarter: 2022Q2

REPORT INFORMATION
  Report Type: Spontaneous
  Country: US (occurrence: None)
  Receive Date: 20220508
  Receipt Date: 20220508
  Transmission Date: 20220721
  Serious: No
  Sender: FDA-Public Use
  Company Number: None

PATIENT
  Age: 66 Year
  Sex: Female

DRUGS (1)
  1. PAXLOVID [Suspect]
     Active Substance: NIRMATRELVIR\RITONAVIR
     Indication: COVID-19
     Dates: start: 20220427, end: 20220501

REACTIONS (3)
  - Rhinorrhoea [None]
  - Nasal congestion [None]
  - COVID-19 [None]

NARRATIVE: CASE EVENT DATE: 20220508
